FAERS Safety Report 4755941-2 (Version None)
Quarter: 2005Q3

REPORT INFORMATION
  Report Type: 
  Country: None (occurrence: None)
  Receive Date: 20050830
  Receipt Date: 20050808
  Transmission Date: 20060218
  Serious: Yes (Death)
  Sender: FDA-Public Use
  Company Number: 2005UW11954

PATIENT
  Age: 70 Year
  Sex: Female
  Weight: 77.6 kg

DRUGS (6)
  1. CRESTOR [Suspect]
     Indication: BLOOD CHOLESTEROL INCREASED
     Route: 048
     Dates: start: 20031101
  2. ZETIA [Concomitant]
  3. FISH OIL [Concomitant]
  4. PLAVIX [Concomitant]
  5. ASPIRIN [Concomitant]
  6. ACE INHIBITOR [Concomitant]

REACTIONS (1)
  - CARDIAC ARREST [None]
